FAERS Safety Report 5338341-6 (Version None)
Quarter: 2007Q2

REPORT INFORMATION
  Report Type: 
  Country: None (occurrence: None)
  Receive Date: 20070405
  Receipt Date: 20061115
  Transmission Date: 20071010
  Serious: No
  Sender: FDA-Public Use
  Company Number: US200611002974

PATIENT
  Age: 59 Year
  Sex: Female

DRUGS (5)
  1. CYMBALTA [Suspect]
     Indication: MUSCLE SPASMS
     Dosage: 60 MG, DAILY (1/D)
     Dates: start: 20060101, end: 20061001
  2. PREMPRO [Concomitant]
  3. SYNTHROID [Concomitant]
  4. VOLTAREN /SCH/ (DICLOFENAC POTASSIUM) [Concomitant]
  5. LIPITOR [Concomitant]

REACTIONS (3)
  - APPETITE DISORDER [None]
  - EATING DISORDER [None]
  - WEIGHT INCREASED [None]
